FAERS Safety Report 18910212 (Version 1)
Quarter: 2021Q1

REPORT INFORMATION
  Report Type: Spontaneous
  Country: US (occurrence: US)
  Receive Date: 20210218
  Receipt Date: 20210218
  Transmission Date: 20210420
  Serious: Yes (Other)
  Sender: FDA-Public Use
  Company Number: None

PATIENT
  Age: 26 Year
  Sex: Female
  Weight: 76.7 kg

DRUGS (2)
  1. RECLAST [Concomitant]
     Active Substance: ZOLEDRONIC ACID
     Dates: start: 20210204, end: 20210204
  2. BAMLANIVIMAB. [Suspect]
     Active Substance: BAMLANIVIMAB
     Indication: COVID-19 TREATMENT
     Dosage: ?          OTHER FREQUENCY:ONE TIME;?
     Route: 041

REACTIONS (8)
  - Erythema [None]
  - C-reactive protein increased [None]
  - Pain in extremity [None]
  - Joint swelling [None]
  - Joint stiffness [None]
  - Arthralgia [None]
  - Skin mass [None]
  - Osteopenia [None]

NARRATIVE: CASE EVENT DATE: 20210210
